FAERS Safety Report 15845688 (Version 5)
Quarter: 2020Q1

REPORT INFORMATION
  Report Type: Report from Study
  Country: US (occurrence: US)
  Receive Date: 20190119
  Receipt Date: 20200225
  Transmission Date: 20200409
  Serious: Yes (Other)
  Sender: FDA-Public Use
  Company Number: US-B.I. PHARMACEUTICALS,INC./RIDGEFIELD-2017-BI-058216

PATIENT
  Age: 82 Year
  Sex: Male

DRUGS (42)
  1. OFEV [Suspect]
     Active Substance: NINTEDANIB
     Route: 048
     Dates: start: 20170914, end: 20190813
  2. AMLODIPINE [Concomitant]
     Active Substance: AMLODIPINE BESYLATE
     Route: 065
     Dates: start: 20171206
  3. AMLODIPINE [Concomitant]
     Active Substance: AMLODIPINE BESYLATE
     Route: 065
     Dates: start: 20180807
  4. AMLODIPINE [Concomitant]
     Active Substance: AMLODIPINE BESYLATE
     Route: 065
     Dates: start: 20181003
  5. ZOCOR [Concomitant]
     Active Substance: SIMVASTATIN
     Route: 065
     Dates: start: 20180207
  6. ZOCOR [Concomitant]
     Active Substance: SIMVASTATIN
     Route: 065
     Dates: start: 20190103
  7. AMLODIPINE [Concomitant]
     Active Substance: AMLODIPINE BESYLATE
     Indication: PRODUCT USED FOR UNKNOWN INDICATION
     Route: 065
     Dates: start: 20170906
  8. ZOCOR [Concomitant]
     Active Substance: SIMVASTATIN
     Indication: PRODUCT USED FOR UNKNOWN INDICATION
     Route: 065
     Dates: start: 20170906
  9. ASA [Concomitant]
     Active Substance: ASPIRIN
     Route: 065
     Dates: start: 20180807
  10. ASA [Concomitant]
     Active Substance: ASPIRIN
     Route: 065
     Dates: start: 20190103
  11. PREDNISONE. [Concomitant]
     Active Substance: PREDNISONE
     Indication: PRODUCT USED FOR UNKNOWN INDICATION
     Route: 065
     Dates: start: 20180807
  12. HCTZ [Concomitant]
     Active Substance: HYDROCHLOROTHIAZIDE
     Route: 065
     Dates: start: 20171206
  13. HCTZ [Concomitant]
     Active Substance: HYDROCHLOROTHIAZIDE
     Route: 065
     Dates: start: 20180606
  14. OFEV [Suspect]
     Active Substance: NINTEDANIB
     Indication: IDIOPATHIC PULMONARY FIBROSIS
     Route: 048
     Dates: start: 20170912
  15. ASA [Concomitant]
     Active Substance: ASPIRIN
     Route: 065
     Dates: start: 20171206
  16. ASA [Concomitant]
     Active Substance: ASPIRIN
     Route: 065
     Dates: start: 20180606
  17. HCTZ [Concomitant]
     Active Substance: HYDROCHLOROTHIAZIDE
     Route: 065
     Dates: start: 20170309
  18. ASA [Concomitant]
     Active Substance: ASPIRIN
     Indication: PRODUCT USED FOR UNKNOWN INDICATION
     Route: 065
     Dates: start: 20170906
  19. PREDNISONE. [Concomitant]
     Active Substance: PREDNISONE
     Route: 065
     Dates: start: 20181003
  20. HCTZ [Concomitant]
     Active Substance: HYDROCHLOROTHIAZIDE
     Indication: PRODUCT USED FOR UNKNOWN INDICATION
     Route: 065
     Dates: start: 20160906
  21. HCTZ [Concomitant]
     Active Substance: HYDROCHLOROTHIAZIDE
     Route: 065
     Dates: start: 20161130
  22. HCTZ [Concomitant]
     Active Substance: HYDROCHLOROTHIAZIDE
     Route: 065
     Dates: start: 20181003
  23. AMLODIPINE [Concomitant]
     Active Substance: AMLODIPINE BESYLATE
     Route: 065
     Dates: start: 20180606
  24. AMLODIPINE [Concomitant]
     Active Substance: AMLODIPINE BESYLATE
     Route: 065
     Dates: start: 20190103
  25. ZOCOR [Concomitant]
     Active Substance: SIMVASTATIN
     Route: 065
     Dates: start: 20180807
  26. ZOCOR [Concomitant]
     Active Substance: SIMVASTATIN
     Route: 065
     Dates: start: 20181003
  27. ASA [Concomitant]
     Active Substance: ASPIRIN
     Route: 065
     Dates: start: 20181003
  28. O2 [Concomitant]
     Active Substance: OXYGEN
     Dosage: DOSE-2 LPM
     Route: 065
     Dates: start: 20181003
  29. HCTZ [Concomitant]
     Active Substance: HYDROCHLOROTHIAZIDE
     Route: 065
     Dates: start: 20180207
  30. HCTZ [Concomitant]
     Active Substance: HYDROCHLOROTHIAZIDE
     Route: 065
     Dates: start: 20170607
  31. HCTZ [Concomitant]
     Active Substance: HYDROCHLOROTHIAZIDE
     Route: 065
     Dates: start: 20190103
  32. ASA [Concomitant]
     Active Substance: ASPIRIN
     Route: 065
     Dates: start: 20180207
  33. O2 [Concomitant]
     Active Substance: OXYGEN
     Indication: PRODUCT USED FOR UNKNOWN INDICATION
     Dosage: DOSE- 2 LMP
     Route: 065
     Dates: start: 20180606
  34. O2 [Concomitant]
     Active Substance: OXYGEN
     Dosage: DOSE- 2 LPM; 3-4 LPM
     Route: 065
     Dates: start: 20180807
  35. O2 [Concomitant]
     Active Substance: OXYGEN
     Dosage: DOSE-3-4 LPM
     Route: 065
     Dates: start: 20190103
  36. TMP-SMX [Concomitant]
     Active Substance: SULFAMETHOXAZOLE\TRIMETHOPRIM
     Indication: PRODUCT USED FOR UNKNOWN INDICATION
     Route: 065
     Dates: start: 20181003
  37. HCTZ [Concomitant]
     Active Substance: HYDROCHLOROTHIAZIDE
     Route: 065
     Dates: start: 20170906
  38. AMLODIPINE [Concomitant]
     Active Substance: AMLODIPINE BESYLATE
     Route: 065
     Dates: start: 20180207
  39. ZOCOR [Concomitant]
     Active Substance: SIMVASTATIN
     Route: 065
     Dates: start: 20171206
  40. ZOCOR [Concomitant]
     Active Substance: SIMVASTATIN
     Route: 065
     Dates: start: 20180606
  41. ESBRIET [Concomitant]
     Active Substance: PIRFENIDONE
     Indication: PRODUCT USED FOR UNKNOWN INDICATION
     Route: 065
  42. HCTZ [Concomitant]
     Active Substance: HYDROCHLOROTHIAZIDE
     Route: 065
     Dates: start: 20180807

REACTIONS (9)
  - Abdominal discomfort [Unknown]
  - Cough [Unknown]
  - Dyspnoea [Not Recovered/Not Resolved]
  - Idiopathic pulmonary fibrosis [Recovered/Resolved]
  - Idiopathic pulmonary fibrosis [Not Recovered/Not Resolved]
  - Drug intolerance [Unknown]
  - Cough [Recovering/Resolving]
  - Dyspnoea exertional [Unknown]
  - Dizziness [Not Recovered/Not Resolved]

NARRATIVE: CASE EVENT DATE: 20170912
